FAERS Safety Report 9333166 (Version 2)
Quarter: 2013Q2

REPORT INFORMATION
  Report Type: Report from Study
  Country: RU (occurrence: RU)
  Receive Date: 20130606
  Receipt Date: 20130610
  Transmission Date: 20140414
  Serious: Yes (Death, Hospitalization)
  Sender: FDA-Public Use
  Company Number: RU-MILLENNIUM PHARMACEUTICALS, INC.-2013-03617

PATIENT
  Sex: 0

DRUGS (3)
  1. VELCADE [Suspect]
     Indication: PLASMA CELL MYELOMA
     Dosage: 2.4 MG, UNK
     Route: 042
     Dates: start: 20121106, end: 20121116
  2. VELCADE [Suspect]
     Dosage: 2 MG, UNK
     Route: 042
  3. DEXAMETHASONE [Concomitant]
     Dosage: 20 MG, UNK
     Route: 048

REACTIONS (2)
  - Death [Fatal]
  - Periproctitis [Recovered/Resolved]
